FAERS Safety Report 8733333 (Version 3)
Quarter: 2013Q2

REPORT INFORMATION
  Report Type: Spontaneous
  Country: FR (occurrence: FR)
  Receive Date: 20120821
  Receipt Date: 20130521
  Transmission Date: 20140414
  Serious: Yes (Hospitalization)
  Sender: FDA-Public Use
  Company Number: FR-SP-2012-07670

PATIENT
  Age: 80 Year
  Sex: Male
  Weight: 102 kg

DRUGS (1)
  1. IMMUCYST 81 MG [Suspect]
     Indication: BLADDER CANCER
     Route: 043
     Dates: start: 20120606, end: 20120613

REACTIONS (6)
  - Orchitis [Not Recovered/Not Resolved]
  - Infection [Not Recovered/Not Resolved]
  - Haematuria [Not Recovered/Not Resolved]
  - Scrotal swelling [Not Recovered/Not Resolved]
  - Scrotal pain [Not Recovered/Not Resolved]
  - Testicular atrophy [Not Recovered/Not Resolved]
